FAERS Safety Report 24816004 (Version 2)
Quarter: 2025Q1

REPORT INFORMATION
  Report Type: Spontaneous
  Country: US (occurrence: US)
  Receive Date: 20250107
  Receipt Date: 20250115
  Transmission Date: 20250409
  Serious: Yes (Hospitalization, Other)
  Sender: MERCK
  Company Number: US-009507513-2501USA000313

PATIENT
  Age: 32 Year
  Sex: Male

DRUGS (2)
  1. KEYTRUDA [Suspect]
     Active Substance: PEMBROLIZUMAB
     Indication: Lung adenocarcinoma
  2. PACLITAXEL [Suspect]
     Active Substance: PACLITAXEL
     Indication: Lung adenocarcinoma

REACTIONS (5)
  - Immune-mediated cholangitis [Unknown]
  - Pancreatitis [Unknown]
  - Oesophagitis [Unknown]
  - Gastritis haemorrhagic [Unknown]
  - Gastric stenosis [Unknown]
